FAERS Safety Report 20497058 (Version 1)
Quarter: 2022Q1

REPORT INFORMATION
  Report Type: Spontaneous
  Country: CA (occurrence: CA)
  Receive Date: 20220221
  Receipt Date: 20220221
  Transmission Date: 20220423
  Serious: Yes (Life-Threatening, Hospitalization)
  Sender: FDA-Public Use
  Company Number: CA-009507513-2202CAN005536

PATIENT
  Age: 69 Year
  Sex: Male

DRUGS (15)
  1. KEYTRUDA [Suspect]
     Active Substance: PEMBROLIZUMAB
     Indication: Lung adenocarcinoma
     Dosage: 190 MG, Q3W, 4ML SINGLE USE VIAL
     Route: 042
  2. AMIODARONE [Concomitant]
     Active Substance: AMIODARONE
  3. ATIVAN [Concomitant]
     Active Substance: LORAZEPAM
  4. CRESTOR [Concomitant]
     Active Substance: ROSUVASTATIN CALCIUM
  5. ELIQUIS [Concomitant]
     Active Substance: APIXABAN
  6. LASIX [Concomitant]
     Active Substance: FUROSEMIDE
  7. MICRO K [Concomitant]
  8. NEXIUM [Concomitant]
     Active Substance: ESOMEPRAZOLE MAGNESIUM
  9. PREDNISONE [Concomitant]
     Active Substance: PREDNISONE
  10. DILTIAZEM HYDROCHLORIDE [Concomitant]
     Active Substance: DILTIAZEM HYDROCHLORIDE
  11. TRAMADOL HYDROCHLORIDE [Concomitant]
     Active Substance: TRAMADOL HYDROCHLORIDE
  12. VENLAFAXINE HYDROCHLORIDE [Concomitant]
     Active Substance: VENLAFAXINE HYDROCHLORIDE
  13. VENTOLIN [Concomitant]
     Active Substance: ALBUTEROL SULFATE
  14. VITAMIN B12 [Concomitant]
     Active Substance: CYANOCOBALAMIN
  15. FOLIC ACID [Concomitant]
     Active Substance: FOLIC ACID

REACTIONS (7)
  - Dyspnoea [Recovering/Resolving]
  - Endotracheal intubation [Recovering/Resolving]
  - Hyperthyroidism [Recovering/Resolving]
  - Nosocomial infection [Recovering/Resolving]
  - Pneumonia [Recovering/Resolving]
  - Pneumonitis [Recovering/Resolving]
  - Staphylococcal bacteraemia [Recovering/Resolving]
